FAERS Safety Report 6991896-8 (Version None)
Quarter: 2010Q3

REPORT INFORMATION
  Report Type: 
  Country: None (occurrence: None)
  Receive Date: 20100916
  Receipt Date: 20100916
  Transmission Date: 20110219
  Serious: Yes (Other)
  Sender: FDA-Public Use
  Company Number: None

PATIENT
  Sex: Female

DRUGS (2)
  1. TOPAMAX [Suspect]
     Indication: CONVULSION
     Dates: start: 20100801, end: 20100910
  2. KEPPRA [Suspect]
     Indication: CONVULSION

REACTIONS (2)
  - CONDITION AGGRAVATED [None]
  - CONVULSION [None]
